FAERS Safety Report 6804299-3 (Version None)
Quarter: 2010Q2

REPORT INFORMATION
  Report Type: 
  Country: None (occurrence: None)
  Receive Date: 20100628
  Receipt Date: 20070306
  Transmission Date: 20101027
  Serious: No
  Sender: FDA-Public Use
  Company Number: US-PFIZER INC-2007017844

PATIENT
  Age: 29 Year
  Sex: Male

DRUGS (3)
  1. GEODON [Suspect]
     Dates: start: 20020101
  2. LYRICA [Suspect]
     Dates: start: 20070101
  3. TEGRETOL [Suspect]
     Dates: start: 19960101

REACTIONS (2)
  - NERVOUSNESS [None]
  - URTICARIA [None]
